FAERS Safety Report 10048142 (Version 2)
Quarter: 2014Q3

REPORT INFORMATION
  Report Type: Spontaneous
  Country: IT (occurrence: IT)
  Receive Date: 20140331
  Receipt Date: 20140701
  Transmission Date: 20150326
  Serious: Yes (Other)
  Sender: FDA-Public Use
  Company Number: IT-PFIZER INC-2014089570

PATIENT
  Age: 24 Year
  Sex: Female

DRUGS (4)
  1. ZOLOFT [Suspect]
     Active Substance: SERTRALINE HYDROCHLORIDE
     Indication: PERSONALITY DISORDER
     Dosage: 50 MG, DAILY
     Route: 048
     Dates: start: 20130921
  2. ZOLOFT [Suspect]
     Active Substance: SERTRALINE HYDROCHLORIDE
     Dosage: UNK
     Route: 048
     Dates: start: 20140121, end: 20140121
  3. LORAZEPAM. [Suspect]
     Active Substance: LORAZEPAM
     Dosage: UNK
     Route: 048
     Dates: start: 20140121, end: 20140121
  4. LORAZEPAM. [Suspect]
     Active Substance: LORAZEPAM
     Indication: PERSONALITY DISORDER
     Dosage: 1 MG, DAILY
     Route: 048
     Dates: start: 20130921

REACTIONS (3)
  - Electrocardiogram abnormal [Recovering/Resolving]
  - Sluggishness [Recovering/Resolving]
  - Drug abuse [Recovering/Resolving]

NARRATIVE: CASE EVENT DATE: 20140121
